FAERS Safety Report 13664632 (Version 2)
Quarter: 2017Q2

REPORT INFORMATION
  Report Type: Spontaneous
  Country: FR (occurrence: FR)
  Receive Date: 20170619
  Receipt Date: 20170626
  Transmission Date: 20170830
  Serious: Yes (Other)
  Sender: FDA-Public Use
  Company Number: FR-GLAXOSMITHKLINE-FR2017GSK093457

PATIENT
  Age: 31 Year
  Sex: Female

DRUGS (1)
  1. ZOVIRAX [Suspect]
     Active Substance: ACYCLOVIR
     Indication: ORAL HERPES
     Dosage: 200 MG, TID
     Route: 048
     Dates: start: 201705, end: 201705

REACTIONS (2)
  - Monoplegia [Recovered/Resolved]
  - Panic attack [Recovered/Resolved]

NARRATIVE: CASE EVENT DATE: 201705
